FAERS Safety Report 12777204 (Version 2)
Quarter: 2016Q4

REPORT INFORMATION
  Report Type: Report from Study
  Country: US (occurrence: US)
  Receive Date: 20160924
  Receipt Date: 20161010
  Transmission Date: 20170207
  Serious: No
  Sender: FDA-Public Use
  Company Number: PHEH2016US023925

PATIENT
  Age: 36 Year
  Sex: Female

DRUGS (1)
  1. COSENTYX [Suspect]
     Active Substance: SECUKINUMAB
     Indication: PSORIASIS
     Dosage: 300 MG, QW
     Route: 058
     Dates: start: 20160908

REACTIONS (4)
  - Nausea [Unknown]
  - Fatigue [Unknown]
  - Malaise [Unknown]
  - Depressed mood [Unknown]

NARRATIVE: CASE EVENT DATE: 20160908
